FAERS Safety Report 7402796-3 (Version None)
Quarter: 2011Q2

REPORT INFORMATION
  Report Type: 
  Country: None (occurrence: None)
  Receive Date: 20110408
  Receipt Date: 20110331
  Transmission Date: 20111010
  Serious: Yes (Hospitalization, Other)
  Sender: FDA-Public Use
  Company Number: FR-ELI_LILLY_AND_COMPANY-FR201103007301

PATIENT
  Sex: Male
  Weight: 78 kg

DRUGS (3)
  1. CISPLATIN [Suspect]
     Indication: NON-SMALL CELL LUNG CANCER STAGE IV
     Dosage: 145 MG, OTHER
     Route: 042
     Dates: start: 20110315
  2. GEMCITABINE HYDROCHLORIDE [Suspect]
     Indication: NON-SMALL CELL LUNG CANCER STAGE IV
     Dosage: 2150 MG, OTHER
     Route: 042
     Dates: start: 20110315
  3. NECITUMUMAB (11F8) (LY3012211) [Suspect]
     Indication: NON-SMALL CELL LUNG CANCER STAGE IV
     Dosage: 800 MG, OTHER
     Route: 042
     Dates: start: 20110315

REACTIONS (3)
  - BLOOD CREATININE INCREASED [None]
  - MEDICATION ERROR [None]
  - INTENTIONAL DRUG MISUSE [None]
